FAERS Safety Report 26138718 (Version 1)
Quarter: 2025Q4

REPORT INFORMATION
  Report Type: Spontaneous
  Country: US (occurrence: US)
  Receive Date: 20251210
  Receipt Date: 20251210
  Transmission Date: 20260117
  Serious: No
  Sender: ABBVIE
  Company Number: US-ABBVIE-6579305

PATIENT
  Sex: Male

DRUGS (1)
  1. RISANKIZUMAB [Suspect]
     Active Substance: RISANKIZUMAB
     Indication: Colitis ulcerative
     Dosage: SKYRIZI 360 MG/ 2.4 ML SINGLE-DOSE PREFILLED CARTRIDGE WITH ON BODY INJECTOR
     Route: 058

REACTIONS (1)
  - Product storage error [Unknown]
